FAERS Safety Report 8756408 (Version 7)
Quarter: 2015Q3

REPORT INFORMATION
  Report Type: Report from Study
  Country: JP (occurrence: JP)
  Receive Date: 20120828
  Receipt Date: 20150813
  Transmission Date: 20151125
  Serious: Yes (Hospitalization)
  Sender: FDA-Public Use
  Company Number: JP-009507513-1103USA01264

PATIENT
  Age: 35 Year
  Sex: Male

DRUGS (15)
  1. ZERIT [Concomitant]
     Active Substance: STAVUDINE
     Indication: HIV INFECTION
     Dosage: 30 MG, BID
     Route: 048
     Dates: start: 19990112, end: 20041117
  2. INTELENCE [Suspect]
     Active Substance: ETRAVIRINE
     Indication: HIV INFECTION
     Dosage: 400 MG, QD
     Route: 048
     Dates: start: 20091229
  3. EPIVIR [Suspect]
     Active Substance: LAMIVUDINE
     Indication: HIV INFECTION
     Dosage: 150 MG, BID
     Route: 048
     Dates: start: 19990112, end: 20091228
  4. PEGASYS [Concomitant]
     Active Substance: PEGINTERFERON ALFA-2A
     Dosage: 36 MICROGRAM, QOW
     Route: 058
     Dates: end: 20120528
  5. EPZICOM [Suspect]
     Active Substance: ABACAVIR SULFATE\LAMIVUDINE
     Indication: HIV INFECTION
     Dosage: 1 DF, DIVIDED DOSE, FREQUENCY: UNKNOWN, 1 DAY INTERVAL
     Route: 048
     Dates: start: 20091229
  6. KALETRA [Suspect]
     Active Substance: LOPINAVIR\RITONAVIR
     Indication: HIV INFECTION
     Dosage: 6 DF, QD
     Route: 048
     Dates: end: 20061031
  7. ISENTRESS [Suspect]
     Active Substance: RALTEGRAVIR POTASSIUM
     Indication: HIV INFECTION
     Dosage: 800 MG, QD
     Route: 048
     Dates: start: 20091229
  8. URSO [Concomitant]
     Active Substance: URSODIOL
     Dosage: 200 MG, TID, FORMULATION: POR
     Route: 048
     Dates: end: 20110930
  9. FACTOR VIII [Concomitant]
     Active Substance: ANTIHEMOPHILIC FACTOR HUMAN
     Dosage: A VARIETY OF 1000 UT X TIMES/MONTH
     Route: 042
     Dates: start: 20120224
  10. URSO [Concomitant]
     Active Substance: URSODIOL
     Indication: LIVER DISORDER
     Dosage: 600 MG, TID, FORMULATION: POR
     Route: 048
  11. KALETRA [Suspect]
     Active Substance: LOPINAVIR\RITONAVIR
     Dosage: 4 DF, QD
     Route: 048
     Dates: start: 20061101, end: 20091228
  12. VIREAD [Suspect]
     Active Substance: TENOFOVIR DISOPROXIL FUMARATE
     Indication: HIV INFECTION
     Dosage: 300 MG, QD
     Route: 048
     Dates: end: 20091228
  13. VIRACEPT [Concomitant]
     Active Substance: NELFINAVIR MESYLATE
     Indication: HIV INFECTION
     Dosage: 750 MG, TID
     Route: 048
     Dates: start: 19990112, end: 20050112
  14. PEGASYS [Concomitant]
     Active Substance: PEGINTERFERON ALFA-2A
     Indication: HEPATITIS
     Dosage: 45 MICROGRAM, QW
     Route: 058
     Dates: end: 201003
  15. FACTOR VIII [Concomitant]
     Active Substance: ANTIHEMOPHILIC FACTOR HUMAN
     Indication: FACTOR VIII DEFICIENCY
     Dosage: DAILY DOSE UNKNOWN, ALSO REPORTED AS: A VARIETY OF 1000 UT X TIMES/MONTH
     Route: 042
     Dates: end: 20111220

REACTIONS (2)
  - Haemorrhagic diathesis [Recovered/Resolved]
  - Liver disorder [Not Recovered/Not Resolved]

NARRATIVE: CASE EVENT DATE: 199910
